FAERS Safety Report 4644795-0 (Version None)
Quarter: 2005Q2

REPORT INFORMATION
  Report Type: 
  Country: None (occurrence: None)
  Receive Date: 20050426
  Receipt Date: 20050414
  Transmission Date: 20051028
  Serious: Yes (Hospitalization)
  Sender: FDA-Public Use
  Company Number: US-BOEHRINGER INGELHEIM PHARMACEUTICALS, INC.-2005-BP-06210BP

PATIENT
  Sex: Male
  Weight: 63.5 kg

DRUGS (32)
  1. TIPRANAVIR / RITONAVIR CAPSULES [Suspect]
     Indication: HIV INFECTION
     Dosage: TPV/R 1000/400 MG
     Route: 048
     Dates: start: 20041012
  2. NEURONTIN [Suspect]
     Route: 048
  3. MS CONTIN [Suspect]
     Route: 048
  4. MORPHINE [Suspect]
     Route: 048
  5. VICODIN [Suspect]
  6. T-20 [Concomitant]
     Indication: HIV INFECTION
     Route: 058
     Dates: start: 20041012
  7. TRUVADA [Concomitant]
     Indication: HIV INFECTION
     Dosage: 1 TAB
     Route: 048
     Dates: start: 20041012
  8. DIFLUCAN [Concomitant]
     Route: 048
  9. ASOCAL [Concomitant]
  10. IMODIUM [Concomitant]
     Route: 048
  11. DTO [Concomitant]
     Route: 048
  12. DAPSONE [Concomitant]
     Route: 048
  13. FLORINEF [Concomitant]
     Route: 048
  14. CELEXA [Concomitant]
     Route: 048
  15. KLONOPIN [Concomitant]
     Route: 048
  16. VALCYTE [Concomitant]
  17. PROCRIT [Concomitant]
  18. TYLENOL (CAPLET) [Concomitant]
     Route: 048
  19. LOMOTIL [Concomitant]
     Dosage: 2 TABS
     Route: 048
  20. RANITIDINE [Concomitant]
  21. FLAGYL [Concomitant]
     Route: 048
  22. TRAZADONE [Concomitant]
     Route: 048
  23. CALCIUM GLUCONATE [Concomitant]
     Indication: PROPHYLAXIS
     Dosage: 600/200
     Route: 048
  24. LOVENOX [Concomitant]
     Route: 058
     Dates: start: 20041201
  25. COLACE [Concomitant]
     Route: 048
  26. NEUPOGEN [Concomitant]
     Route: 058
  27. FLURONAZOLE [Concomitant]
     Route: 048
     Dates: start: 20041230
  28. LACTAID [Concomitant]
     Route: 048
  29. VALGANCICLOVIR [Concomitant]
     Route: 048
  30. FOLATE [Concomitant]
     Route: 048
  31. AZITHROMYCIN [Concomitant]
     Route: 048
  32. NEXIUM [Concomitant]
     Route: 048

REACTIONS (8)
  - ATYPICAL MYCOBACTERIAL INFECTION [None]
  - ECTHYMA [None]
  - HALLUCINATION [None]
  - LYMPHADENOPATHY [None]
  - MENTAL STATUS CHANGES [None]
  - OEDEMA PERIPHERAL [None]
  - SOMNOLENCE [None]
  - TREMOR [None]
